FAERS Safety Report 5469492-3 (Version None)
Quarter: 2007Q3

REPORT INFORMATION
  Report Type: 
  Country: None (occurrence: None)
  Receive Date: 20070927
  Receipt Date: 20070920
  Transmission Date: 20080115
  Serious: Yes (Life-Threatening, Other)
  Sender: FDA-Public Use
  Company Number: A0671309A

PATIENT
  Age: 48 Year
  Sex: Female
  Weight: 62.7 kg

DRUGS (4)
  1. WELLBUTRIN XL [Suspect]
     Indication: DEPRESSION
     Dosage: 300MG IN THE MORNING
     Route: 048
     Dates: start: 20070809, end: 20070813
  2. UNITHROID [Concomitant]
     Indication: HYPOTHYROIDISM
     Dosage: .05MG UNKNOWN
     Route: 048
     Dates: start: 19960101
  3. ZOMIG [Concomitant]
     Indication: MIGRAINE
     Dosage: 5MG AS REQUIRED
     Route: 048
     Dates: start: 20030101
  4. RELPAX [Concomitant]
     Indication: MIGRAINE
     Dosage: 40MG AS REQUIRED
     Route: 048
     Dates: start: 20050101

REACTIONS (13)
  - AGITATION [None]
  - ANGER [None]
  - ANXIETY [None]
  - CRYING [None]
  - DECREASED APPETITE [None]
  - DECREASED INTEREST [None]
  - DEPRESSED MOOD [None]
  - DEPRESSION [None]
  - DISTURBANCE IN ATTENTION [None]
  - LIBIDO DECREASED [None]
  - MEDICATION ERROR [None]
  - SUICIDAL IDEATION [None]
  - WEIGHT DECREASED [None]
